FAERS Safety Report 9912397 (Version 3)
Quarter: 2014Q2

REPORT INFORMATION
  Report Type: Spontaneous
  Country: JP (occurrence: JP)
  Receive Date: 20140220
  Receipt Date: 20140404
  Transmission Date: 20141212
  Serious: Yes (Death, Other)
  Sender: FDA-Public Use
  Company Number: JP-BEH-2014040729

PATIENT
  Age: 55 Year
  Sex: Male
  Weight: 55.5 kg

DRUGS (6)
  1. INTRAVENOUS IMMUNOGLOBULIN [Suspect]
     Dates: start: 201001
  2. INTRAVENOUS IMMUNOGLOBULIN [Suspect]
     Indication: AMYOTROPHIC LATERAL SCLEROSIS
     Dates: start: 201002
  3. METHYLPREDNISOLONE [Suspect]
     Indication: AMYOTROPHIC LATERAL SCLEROSIS
     Route: 042
  4. CICLOSPORIN [Suspect]
     Indication: AMYOTROPHIC LATERAL SCLEROSIS
  5. RITUXIMAB [Suspect]
     Indication: AMYOTROPHIC LATERAL SCLEROSIS
  6. PREDNISOLONE [Suspect]
     Route: 048

REACTIONS (1)
  - Drug ineffective for unapproved indication [Fatal]
